FAERS Safety Report 9727511 (Version 2)
Quarter: 2013Q4

REPORT INFORMATION
  Report Type: Spontaneous
  Country: US (occurrence: US)
  Receive Date: 20131203
  Receipt Date: 20131203
  Transmission Date: 20140711
  Serious: Yes (Life-Threatening, Hospitalization, Disabling, Other)
  Sender: FDA-Public Use
  Company Number: US-GILEAD-2008-0016598

PATIENT
  Age: 53 Year
  Sex: Male
  Weight: 97.52 kg

DRUGS (8)
  1. VIREAD [Suspect]
     Indication: HIV INFECTION
     Route: 048
     Dates: start: 200704, end: 20080522
  2. INDOMETHACIN [Suspect]
     Route: 048
     Dates: start: 200802
  3. KALETRA [Concomitant]
     Indication: HIV INFECTION
     Route: 048
  4. EPZICOM [Concomitant]
     Indication: HIV INFECTION
     Route: 048
     Dates: start: 200801
  5. ATOVAQUONE [Concomitant]
     Route: 048
  6. SYNTHROID [Concomitant]
     Route: 048
  7. TOPAMAX [Concomitant]
     Route: 048
  8. DEPAKOTE [Concomitant]
     Route: 048

REACTIONS (1)
  - Renal tubular necrosis [Not Recovered/Not Resolved]
